FAERS Safety Report 9879827 (Version 1)
Quarter: 2014Q1

REPORT INFORMATION
  Report Type: Spontaneous
  Country: US (occurrence: US)
  Receive Date: 20140206
  Receipt Date: 20140206
  Transmission Date: 20141002
  Serious: Yes (Other)
  Sender: FDA-Public Use
  Company Number: US-GILEAD-2014-0093962

PATIENT
  Age: 62 Year
  Sex: Male

DRUGS (1)
  1. RANEXA [Suspect]
     Indication: ANGINA PECTORIS
     Dosage: 1000 MG, UNK
     Route: 048

REACTIONS (8)
  - Cardiac arrest [Unknown]
  - Pneumonia [Unknown]
  - Cardiac failure congestive [Unknown]
  - Hyperlipidaemia [Unknown]
  - Hypertension [Unknown]
  - Weight decreased [Unknown]
  - Syncope [Unknown]
  - Dizziness [Unknown]
